FAERS Safety Report 19966016 (Version 1)
Quarter: 2021Q4

REPORT INFORMATION
  Report Type: Spontaneous
  Country: AR (occurrence: AR)
  Receive Date: 20211018
  Receipt Date: 20211018
  Transmission Date: 20220303
  Serious: Yes (Other)
  Sender: FDA-Public Use
  Company Number: AR-PFIZER INC-202101317229

PATIENT
  Age: 63 Year
  Sex: Male

DRUGS (1)
  1. INLYTA [Suspect]
     Active Substance: AXITINIB
     Indication: Renal cancer
     Dosage: 10 MG, DAILY
     Dates: start: 20210324

REACTIONS (8)
  - Feeling abnormal [Unknown]
  - Pruritus [Unknown]
  - Insomnia [Unknown]
  - Skin atrophy [Unknown]
  - Skin burning sensation [Unknown]
  - Oral discomfort [Unknown]
  - Burn of internal organs [Unknown]
  - Pain [Unknown]

NARRATIVE: CASE EVENT DATE: 20210801
